FAERS Safety Report 8380472-0 (Version None)
Quarter: 2012Q2

REPORT INFORMATION
  Report Type: 
  Country: None (occurrence: None)
  Receive Date: 20120523
  Receipt Date: 20120517
  Transmission Date: 20120825
  Serious: Yes (Life-Threatening)
  Sender: FDA-Public Use
  Company Number: JP-GLAXOSMITHKLINE-B0779115A

PATIENT
  Sex: Female

DRUGS (22)
  1. LANSOPRAZOLE [Concomitant]
     Dosage: 60MG PER DAY
     Route: 042
     Dates: start: 20120105, end: 20120110
  2. RABEPRAZOLE SODIUM [Concomitant]
     Dosage: 10MG PER DAY
     Route: 048
     Dates: start: 20120308
  3. MAXIPIME [Concomitant]
     Dosage: 4G PER DAY
     Route: 042
     Dates: start: 20120119, end: 20120121
  4. PROMACTA [Suspect]
     Indication: IDIOPATHIC THROMBOCYTOPENIC PURPURA
     Dosage: 12.5MG PER DAY
     Route: 048
     Dates: start: 20111018, end: 20111031
  5. PROMACTA [Suspect]
     Dosage: 25MG PER DAY
     Route: 048
     Dates: start: 20111101, end: 20111219
  6. FAMOTIDINE [Concomitant]
     Dosage: 20MG PER DAY
     Route: 048
     Dates: start: 20120214, end: 20120309
  7. ITRACONAZOLE [Concomitant]
     Dosage: 200MG PER DAY
     Route: 042
     Dates: start: 20120121, end: 20120207
  8. UNASYN [Concomitant]
     Dosage: 4.5G PER DAY
     Dates: start: 20120128, end: 20120207
  9. PREDNISOLONE [Concomitant]
     Indication: IDIOPATHIC THROMBOCYTOPENIC PURPURA
     Dosage: 50MG PER DAY
     Route: 048
     Dates: start: 20120114, end: 20120124
  10. PROMACTA [Suspect]
     Dosage: 50MG PER DAY
     Route: 048
     Dates: end: 20120229
  11. MEROPENEM [Concomitant]
     Dosage: 3G PER DAY
     Route: 042
     Dates: start: 20120119, end: 20120119
  12. VANCOMYCIN [Concomitant]
     Dosage: 2G PER DAY
     Route: 042
     Dates: start: 20120121, end: 20120123
  13. LANSOPRAZOLE [Concomitant]
     Dosage: 30MG PER DAY
     Route: 042
     Dates: start: 20120111, end: 20120213
  14. ITRACONAZOLE [Concomitant]
     Dosage: 200MG PER DAY
     Route: 048
     Dates: start: 20120208
  15. POLYGAM S/D [Concomitant]
     Dosage: 5G PER DAY
     Route: 030
     Dates: start: 20120119, end: 20120119
  16. VANCOMYCIN [Concomitant]
     Dosage: 1G PER DAY
     Route: 042
     Dates: start: 20120124, end: 20120127
  17. PROMACTA [Suspect]
     Dosage: 50MG PER DAY
     Route: 048
     Dates: start: 20111220
  18. ITRACONAZOLE [Concomitant]
     Dosage: 400MG PER DAY
     Route: 042
     Dates: start: 20120119, end: 20120120
  19. PREDNISOLONE [Concomitant]
     Dosage: 25MG PER DAY
     Route: 048
     Dates: start: 20120127, end: 20120128
  20. GLAKAY [Concomitant]
     Indication: IDIOPATHIC THROMBOCYTOPENIC PURPURA
     Dosage: 45MG PER DAY
     Route: 048
     Dates: end: 20120105
  21. HICEE [Concomitant]
     Indication: IDIOPATHIC THROMBOCYTOPENIC PURPURA
     Dosage: 3G PER DAY
     Route: 048
     Dates: end: 20120105
  22. POLYGAM S/D [Concomitant]
     Dosage: 5G PER DAY
     Route: 030
     Dates: start: 20120127, end: 20120127

REACTIONS (2)
  - SEPTIC SHOCK [None]
  - SEPSIS [None]
